FAERS Safety Report 4590010-6 (Version None)
Quarter: 2005Q1

REPORT INFORMATION
  Report Type: 
  Country: None (occurrence: None)
  Receive Date: 20050217
  Receipt Date: 20050203
  Transmission Date: 20050727
  Serious: Yes (Hospitalization)
  Sender: FDA-Public Use
  Company Number: 2005AP01154

PATIENT
  Age: 10 Year
  Sex: Female
  Weight: 45 kg

DRUGS (1)
  1. SEROQUEL [Suspect]
     Dosage: 100 MG DAILY PO
     Route: 048
     Dates: end: 20031218

REACTIONS (6)
  - ABDOMINAL PAIN [None]
  - GLYCOSURIA [None]
  - HYPERGLYCAEMIA [None]
  - KETONURIA [None]
  - POLYDIPSIA [None]
  - POLYURIA [None]
